FAERS Safety Report 7633683-3 (Version None)
Quarter: 2011Q3

REPORT INFORMATION
  Report Type: 
  Country: None (occurrence: None)
  Receive Date: 20110725
  Receipt Date: 20110718
  Transmission Date: 20111222
  Serious: Yes (Hospitalization)
  Sender: FDA-Public Use
  Company Number: GB-AMGEN-GBRCT2011036194

PATIENT
  Age: 74 Year
  Sex: Male

DRUGS (9)
  1. LANSOPRAZOLE [Concomitant]
     Dosage: 30 MG, QD
     Dates: start: 20110301
  2. METOCLOPRAMIDE [Concomitant]
     Dosage: UNK
     Dates: start: 20110414
  3. PANITUMUMAB [Suspect]
     Indication: GASTROOESOPHAGEAL CANCER
     Dosage: UNK
     Dates: start: 20110505
  4. EPIRUBICIN [Concomitant]
     Dosage: UNK
     Dates: start: 20110505
  5. CAPECITABINE [Concomitant]
     Dosage: UNK
     Dates: start: 20110505
  6. ACETAMINOPHEN [Concomitant]
     Dosage: 1 G, PRN
     Dates: start: 20110301
  7. ONDANSETRON [Concomitant]
     Dosage: 8 MG, UNK
     Dates: start: 20110413
  8. DEXAMETHASONE [Concomitant]
     Dosage: 4 MG, QD
     Dates: start: 20110414
  9. OXALIPLATIN [Concomitant]
     Dosage: UNK
     Dates: start: 20110505

REACTIONS (5)
  - OROPHARYNGEAL PAIN [None]
  - MALAISE [None]
  - DEHYDRATION [None]
  - DECREASED APPETITE [None]
  - URINARY TRACT INFECTION [None]
